FAERS Safety Report 8945493 (Version 1)
Quarter: 2012Q4

REPORT INFORMATION
  Report Type: 
  Country: US (occurrence: US)
  Receive Date: 20121204
  Receipt Date: 20121204
  Transmission Date: 20130627
  Serious: No
  Sender: FDA-Public Use
  Company Number: US-AMGEN-USASP2012074950

PATIENT
  Age: 26 Year
  Sex: Female

DRUGS (1)
  1. ENBREL [Suspect]
     Indication: PSORIATIC ARTHROPATHY
     Dosage: 50 mg, once weekly
     Route: 065
     Dates: start: 20120301

REACTIONS (3)
  - Toothache [Recovered/Resolved]
  - Post procedural infection [Recovered/Resolved]
  - Nasopharyngitis [Recovered/Resolved]
